FAERS Safety Report 12517073 (Version 1)
Quarter: 2016Q2

REPORT INFORMATION
  Report Type: Spontaneous
  Country: FR (occurrence: FR)
  Receive Date: 20160630
  Receipt Date: 20160630
  Transmission Date: 20160815
  Serious: Yes (Life-Threatening, Hospitalization, Other)
  Sender: FDA-Public Use
  Company Number: FR-PFIZER INC-2016317246

PATIENT
  Age: 60 Year
  Sex: Male

DRUGS (9)
  1. ATRACURIUM BESILATE [Suspect]
     Active Substance: ATRACURIUM BESYLATE
     Indication: GENERAL ANAESTHESIA
     Dosage: 40 MG, SINGLE
     Route: 042
     Dates: start: 20160211, end: 20160211
  2. PROPOFOL. [Suspect]
     Active Substance: PROPOFOL
     Indication: INDUCTION OF ANAESTHESIA
     Dosage: 200 MG, UNK
     Route: 040
     Dates: start: 20160211, end: 20160211
  3. SUFENTANIL [Suspect]
     Active Substance: SUFENTANIL
     Indication: INDUCTION OF ANAESTHESIA
     Dosage: 20 UG, SINGLE
     Route: 040
     Dates: start: 20160211, end: 20160211
  4. ATARAX [Concomitant]
     Active Substance: HYDROXYZINE\HYDROXYZINE HYDROCHLORIDE
     Indication: PREMEDICATION
     Dosage: UNK
     Dates: start: 20160211
  5. PROPOFOL. [Suspect]
     Active Substance: PROPOFOL
     Dosage: 200 MG (100 MG X2), UNK
     Route: 040
     Dates: start: 20160211, end: 20160211
  6. ATORVASTATIN [Concomitant]
     Active Substance: ATORVASTATIN
  7. NAROPEINE [Concomitant]
     Active Substance: ROPIVACAINE HYDROCHLORIDE
     Indication: NERVE BLOCK
     Dosage: 150 MG, UNK
     Dates: start: 20160211, end: 20160211
  8. IRBESARTAN. [Concomitant]
     Active Substance: IRBESARTAN
  9. LOXEN [Concomitant]
     Active Substance: NICARDIPINE HYDROCHLORIDE
     Indication: PREMEDICATION
     Dosage: UNK
     Dates: start: 20160211

REACTIONS (5)
  - Bronchospasm [Recovered/Resolved]
  - Hypotension [Unknown]
  - Generalised erythema [Unknown]
  - Type I hypersensitivity [Recovered/Resolved]
  - Hypoventilation [Unknown]

NARRATIVE: CASE EVENT DATE: 20160211
